FAERS Safety Report 5396142-7 (Version None)
Quarter: 2007Q3

REPORT INFORMATION
  Report Type: 
  Country: None (occurrence: None)
  Receive Date: 20070725
  Receipt Date: 20070718
  Transmission Date: 20080115
  Serious: Yes (Hospitalization)
  Sender: FDA-Public Use
  Company Number: PHBS2007JP12225

PATIENT
  Age: 65 Year
  Sex: Male

DRUGS (2)
  1. PAROXETINE HYDROCHLORIDE [Concomitant]
     Indication: DEPRESSION
     Route: 065
  2. TOFRANIL [Suspect]
     Route: 048

REACTIONS (5)
  - CEREBRAL HAEMORRHAGE [None]
  - DEPRESSED LEVEL OF CONSCIOUSNESS [None]
  - FALL [None]
  - HEMIPLEGIA [None]
  - INAPPROPRIATE ANTIDIURETIC HORMONE SECRETION [None]
